FAERS Safety Report 5191608-7 (Version None)
Quarter: 2006Q4

REPORT INFORMATION
  Report Type: 
  Country: None (occurrence: None)
  Receive Date: 20061219
  Receipt Date: 20061206
  Transmission Date: 20070319
  Serious: Yes (Hospitalization)
  Sender: FDA-Public Use
  Company Number: 2006S1000299

PATIENT
  Age: 30 Year
  Sex: Female

DRUGS (2)
  1. CLOBETASOL PROPIONATE [Suspect]
     Indication: PSORIASIS
     Dosage: 0.05 PCT; QD; TOP
     Route: 061
     Dates: start: 20060923, end: 20060930
  2. DOXYCYCLINE [Concomitant]

REACTIONS (4)
  - HEADACHE [None]
  - HYPERSENSITIVITY [None]
  - HYPERTENSIVE CRISIS [None]
  - TACHYCARDIA [None]
